FAERS Safety Report 9060401 (Version 1)
Quarter: 2013Q1

REPORT INFORMATION
  Report Type: Spontaneous
  Country: US (occurrence: US)
  Receive Date: 20130212
  Receipt Date: 20130212
  Transmission Date: 20140127
  Serious: Yes (Hospitalization, Other)
  Sender: FDA-Public Use
  Company Number: US-ELI_LILLY_AND_COMPANY-US201302000670

PATIENT
  Sex: Female

DRUGS (3)
  1. BYETTA [Suspect]
     Dosage: 10 UG, BID
     Route: 058
     Dates: start: 20120830
  2. GLIMEPIRIDE [Concomitant]
     Dosage: 4 MG, QD
     Dates: start: 20120830
  3. ANTIDEPRESSANTS [Concomitant]
     Indication: DEPRESSION
     Dosage: UNK

REACTIONS (7)
  - Gastritis [Not Recovered/Not Resolved]
  - Oesophagitis [Unknown]
  - Duodenitis [Unknown]
  - Pancreatitis [Unknown]
  - Depression [Unknown]
  - Malaise [Unknown]
  - Weight decreased [Not Recovered/Not Resolved]
